FAERS Safety Report 6164177-2 (Version None)
Quarter: 2009Q2

REPORT INFORMATION
  Report Type: 
  Country: None (occurrence: None)
  Receive Date: 20090422
  Receipt Date: 20090410
  Transmission Date: 20091009
  Serious: Yes (Other)
  Sender: FDA-Public Use
  Company Number: US-PFIZER INC-2009162916

PATIENT
  Sex: Female

DRUGS (8)
  1. XANAX [Suspect]
     Indication: ANXIETY
     Dosage: 0.25 MG
  2. XANAX [Suspect]
     Indication: SLEEP DISORDER
  3. COLAZAL [Concomitant]
  4. SYNTHROID [Concomitant]
  5. FLONASE [Concomitant]
  6. PREVACID [Concomitant]
  7. CALCIUM [Concomitant]
  8. VITAMIN B-12 [Concomitant]

REACTIONS (4)
  - ANXIETY [None]
  - DRUG INEFFECTIVE [None]
  - MIDDLE INSOMNIA [None]
  - RECURRENT CANCER [None]
